FAERS Safety Report 14634365 (Version 2)
Quarter: 2018Q1

REPORT INFORMATION
  Report Type: Spontaneous
  Country: ES (occurrence: ES)
  Receive Date: 20180314
  Receipt Date: 20180320
  Transmission Date: 20180509
  Serious: Yes (Hospitalization)
  Sender: FDA-Public Use
  Company Number: ES-ROCHE-2080097

PATIENT
  Sex: Female

DRUGS (6)
  1. ZELBORAF [Suspect]
     Active Substance: VEMURAFENIB
     Indication: METASTATIC MALIGNANT MELANOMA
     Route: 048
     Dates: start: 20180202, end: 20180216
  2. OMEPRAZOLE. [Concomitant]
     Active Substance: OMEPRAZOLE
  3. NOLOTIL (DIPYRONE) [Concomitant]
     Active Substance: METAMIZOLE
  4. COBIMETINIB. [Suspect]
     Active Substance: COBIMETINIB
     Indication: METASTATIC MALIGNANT MELANOMA
     Route: 048
     Dates: start: 20180202, end: 20180216
  5. LYRICA [Concomitant]
     Active Substance: PREGABALIN
  6. FORTECORTIN [Concomitant]
     Active Substance: DEXAMETHASONE
     Indication: PAIN

REACTIONS (2)
  - Stevens-Johnson syndrome [Recovering/Resolving]
  - Toxic epidermal necrolysis [Recovering/Resolving]
